FAERS Safety Report 9109168 (Version 2)
Quarter: 2013Q1

REPORT INFORMATION
  Report Type: Spontaneous
  Country: US (occurrence: US)
  Receive Date: 20130222
  Receipt Date: 20130226
  Transmission Date: 20140127
  Serious: Yes (Death, Hospitalization)
  Sender: FDA-Public Use
  Company Number: US-B.I. PHARMACEUTICALS,INC./RIDGEFIELD-2012-BI-04336BP

PATIENT
  Age: 70 Year
  Sex: Male
  Weight: 95.25 kg

DRUGS (12)
  1. PRADAXA [Suspect]
     Indication: ATRIAL FIBRILLATION
     Dosage: 300 MG
     Dates: start: 20110215
  2. LOSARTAN [Concomitant]
     Dosage: 50 MG
  3. LASIX [Concomitant]
     Dosage: 160 MG
  4. METOLAZONE [Concomitant]
     Dosage: 2.5 MG
  5. POTASSIUM CHLORIDE [Concomitant]
     Dosage: 40 MEQ
  6. CARAFATE [Concomitant]
     Dosage: 4 G
  7. ZOCOR [Concomitant]
     Dosage: 20 MG
  8. NIASPAN [Concomitant]
     Dosage: 500 MG
  9. SPIRIVA [Concomitant]
     Dosage: 18 MCG
     Route: 055
  10. LANTUS [Concomitant]
     Dosage: 80 U
     Route: 058
  11. NITROGLYCERIN [Concomitant]
  12. NEXIUIM [Concomitant]

REACTIONS (2)
  - Pneumonia [Fatal]
  - Subdural haematoma [Fatal]
